FAERS Safety Report 18235848 (Version 2)
Quarter: 2020Q3

REPORT INFORMATION
  Report Type: Spontaneous
  Country: US (occurrence: US)
  Receive Date: 20200905
  Receipt Date: 20200924
  Transmission Date: 20201103
  Serious: No
  Sender: FDA-Public Use
  Company Number: US-UNITED THERAPEUTICS-UNT-2020-013232

PATIENT
  Age: 68 Year
  Sex: Male

DRUGS (4)
  1. REMODULIN [Suspect]
     Active Substance: TREPROSTINIL
     Dosage: 0.029 ?G/KG, CONTINUING
     Route: 058
  2. REMODULIN [Suspect]
     Active Substance: TREPROSTINIL
     Indication: PULMONARY ARTERIAL HYPERTENSION
     Dosage: UNK, CONTINUING
     Route: 058
     Dates: start: 20191012
  3. REMODULIN [Suspect]
     Active Substance: TREPROSTINIL
     Dosage: 0.031 ?G/KG, CONTINUING (AT INFUSION RATE OF 0.030 ML/HR)
     Route: 058
     Dates: start: 202009
  4. REMODULIN [Suspect]
     Active Substance: TREPROSTINIL
     Dosage: 0.029 ?G/KG, CONTINUING (AT INFUSION RATE OF 0.028 ML/HR)
     Route: 058
     Dates: start: 202009

REACTIONS (3)
  - Pain in extremity [Unknown]
  - Abdominal distension [Unknown]
  - Gastric disorder [Unknown]

NARRATIVE: CASE EVENT DATE: 202009
